FAERS Safety Report 18243247 (Version 2)
Quarter: 2020Q3

REPORT INFORMATION
  Report Type: Spontaneous
  Country: US (occurrence: US)
  Receive Date: 20200908
  Receipt Date: 20200928
  Transmission Date: 20201103
  Serious: Yes (Other)
  Sender: FDA-Public Use
  Company Number: US-TEVA-2020-US-1824650

PATIENT
  Age: 17 Year
  Sex: Female

DRUGS (10)
  1. CAPECITABINE. [Suspect]
     Active Substance: CAPECITABINE
     Indication: NEUROENDOCRINE CARCINOMA
     Dosage: 2000 MILLIGRAM DAILY; 1000 MG TWICE DAILY FOR 14 DAYS, EACH CYCLE OF 28 DAYS. SHE RECEIVED TOTAL 6 C
     Route: 048
  2. CARBOPLATIN. [Suspect]
     Active Substance: CARBOPLATIN
     Indication: OVARIAN SERTOLI-LEYDIG CELL TUMOUR
     Dosage: STARTED THERAPY AT 24 WEEKS OF GESTATION ; 400 MG/M2/DOSE (TARGET AUC 6) EVERY 21 DAYS; SHE RECEI...
     Route: 065
  3. ETOPOSIDE. [Concomitant]
     Active Substance: ETOPOSIDE
     Indication: OVARIAN CANCER
  4. CISPLATIN. [Suspect]
     Active Substance: CISPLATIN
     Indication: OVARIAN CANCER
  5. TEMOZOLOMIDE. [Suspect]
     Active Substance: TEMOZOLOMIDE
     Indication: NEUROENDOCRINE CARCINOMA
     Dosage: 500 MILLIGRAM DAILY; 250 MG TWICE DAILY FOR 5DAYS, EACH CYCLE OF 28 DAYS. SHE RECEIVED TOTAL 6 CYCLE
     Route: 048
  6. ETOPOSIDE. [Concomitant]
     Active Substance: ETOPOSIDE
     Indication: NEUROENDOCRINE CARCINOMA
     Dosage: SHE UNDERWENT TWO CYCLES
     Route: 065
  7. CAPECITABINE. [Suspect]
     Active Substance: CAPECITABINE
     Indication: OVARIAN CANCER
  8. PACLITAXEL. [Suspect]
     Active Substance: PACLITAXEL
     Indication: OVARIAN SERTOLI-LEYDIG CELL TUMOUR
     Dosage: STARTED THERAPY AT 24 WEEKS OF GESTATION ; 175 MG/M2/DOSE EVERY 21 DAYS; SHE RECEIVED TOTAL 4 CYC...
     Route: 065
  9. CISPLATIN. [Suspect]
     Active Substance: CISPLATIN
     Indication: NEUROENDOCRINE CARCINOMA
     Dosage: SHE UNDERWENT TWO CYCLES
     Route: 065
  10. TEMOZOLOMIDE. [Suspect]
     Active Substance: TEMOZOLOMIDE
     Indication: OVARIAN CANCER

REACTIONS (4)
  - Contraindicated product administered [Unknown]
  - Maternal exposure during pregnancy [Unknown]
  - Ototoxicity [Unknown]
  - Normal newborn [Unknown]
